FAERS Safety Report 7969699-7 (Version None)
Quarter: 2011Q4

REPORT INFORMATION
  Report Type: 
  Country: None (occurrence: None)
  Receive Date: 20111122
  Receipt Date: 20110809
  Transmission Date: 20120403
  Serious: No
  Sender: FDA-Public Use
  Company Number: PHEH2011US01404

PATIENT
  Age: 47 Year
  Sex: Female

DRUGS (3)
  1. TIZANIDINE HCL [Concomitant]
  2. GILENYA [Suspect]
     Indication: MULTIPLE SCLEROSIS
     Dosage: 0.5 MG, DAILY, ORAL
     Route: 048
     Dates: start: 20110426
  3. FAMPRIDINE (FAMPRIDINE) [Suspect]

REACTIONS (1)
  - JOINT SWELLING [None]
